FAERS Safety Report 24017074 (Version 1)
Quarter: 2024Q2

REPORT INFORMATION
  Report Type: Report from Study
  Country: US (occurrence: US)
  Receive Date: 20240626
  Receipt Date: 20240626
  Transmission Date: 20240716
  Serious: Yes (Other)
  Sender: FDA-Public Use
  Company Number: US-ABBVIE-5812040

PATIENT
  Sex: Female

DRUGS (1)
  1. SKYRIZI [Suspect]
     Active Substance: RISANKIZUMAB-RZAA
     Indication: Psoriasis
     Route: 058
     Dates: start: 20240114

REACTIONS (4)
  - Nail infection [Unknown]
  - Muscle spasms [Not Recovered/Not Resolved]
  - Psoriasis [Not Recovered/Not Resolved]
  - Nail psoriasis [Unknown]

NARRATIVE: CASE EVENT DATE: 20240101
